FAERS Safety Report 13278091 (Version 3)
Quarter: 2017Q2

REPORT INFORMATION
  Report Type: Spontaneous
  Country: US (occurrence: US)
  Receive Date: 20170228
  Receipt Date: 20170502
  Transmission Date: 20170830
  Serious: No
  Sender: FDA-Public Use
  Company Number: US-PFIZER INC-2017088400

PATIENT
  Age: 58 Year
  Sex: Female

DRUGS (3)
  1. AGILEASE [Concomitant]
     Dosage: UNK
     Dates: start: 201407
  2. XELJANZ [Suspect]
     Active Substance: TOFACITINIB CITRATE
     Indication: RHEUMATOID ARTHRITIS
     Dosage: 5 MG, TWICE DAILY
     Dates: start: 201412
  3. TEA TREE OIL. [Concomitant]
     Active Substance: TEA TREE OIL
     Indication: SINUSITIS
     Dosage: UNK
     Dates: start: 2016

REACTIONS (3)
  - Malaise [Recovered/Resolved]
  - Condition aggravated [Unknown]
  - Musculoskeletal discomfort [Unknown]

NARRATIVE: CASE EVENT DATE: 20161220
